FAERS Safety Report 10445332 (Version 1)
Quarter: 2014Q3

REPORT INFORMATION
  Report Type: Spontaneous
  Country: CA (occurrence: CA)
  Receive Date: 20140910
  Receipt Date: 20140910
  Transmission Date: 20150326
  Serious: Yes (Other)
  Sender: FDA-Public Use
  Company Number: CA-GLAXOSMITHKLINE-A1088198A

PATIENT
  Age: 62 Year
  Sex: Female
  Weight: 58.6 kg

DRUGS (7)
  1. CALCIUM PLUS [Concomitant]
  2. ADVAIR HFA [Suspect]
     Active Substance: FLUTICASONE PROPIONATE\SALMETEROL XINAFOATE
     Indication: PRODUCT USED FOR UNKNOWN INDICATION
     Dosage: 50MCG TWICE PER DAY
     Route: 048
  3. CEFUROXIME. [Concomitant]
     Active Substance: CEFUROXIME
  4. CHOLECALCIFEROL [Concomitant]
     Active Substance: CHOLECALCIFEROL
  5. VENTOLIN [Concomitant]
     Active Substance: ALBUTEROL SULFATE
  6. METHOTRIMEPRAZINE [Concomitant]
     Active Substance: LEVOMEPROMAZINE
  7. MONTELUKAST [Concomitant]
     Active Substance: MONTELUKAST SODIUM

REACTIONS (11)
  - Fatigue [Recovered/Resolved]
  - Headache [Recovered/Resolved]
  - Rash [Recovered/Resolved]
  - Urticaria [Recovered/Resolved]
  - Oropharyngeal pain [Recovered/Resolved]
  - Pruritus generalised [Recovered/Resolved]
  - Influenza [Recovered/Resolved]
  - Ocular hyperaemia [Recovered/Resolved]
  - Sinusitis [Recovered/Resolved]
  - Allergic granulomatous angiitis [Recovered/Resolved]
  - Dysphonia [Recovered/Resolved]
